FAERS Safety Report 14933065 (Version 4)
Quarter: 2018Q4

REPORT INFORMATION
  Report Type: Spontaneous
  Country: US (occurrence: US)
  Receive Date: 20180524
  Receipt Date: 20181001
  Transmission Date: 20190204
  Serious: No
  Sender: FDA-Public Use
  Company Number: US-PFIZER INC-2018209668

PATIENT
  Age: 62 Year
  Sex: Male

DRUGS (2)
  1. DAPTOMYCIN. [Suspect]
     Active Substance: DAPTOMYCIN
     Indication: ENTEROCOCCAL INFECTION
     Dosage: 1070 MG, 1X/DAY (8MG/KG)
     Route: 042
     Dates: start: 20180505, end: 20180507
  2. LEVOFLOXACIN. [Concomitant]
     Active Substance: LEVOFLOXACIN
     Indication: PSEUDOMONAS INFECTION
     Dosage: 500 MG, 1X/DAY
     Dates: start: 20180505

REACTIONS (2)
  - Tremor [Recovered/Resolved]
  - Product use issue [Recovered/Resolved]

NARRATIVE: CASE EVENT DATE: 20180505
